FAERS Safety Report 18727137 (Version 1)
Quarter: 2021Q1

REPORT INFORMATION
  Report Type: Report from Study
  Country: AR (occurrence: AR)
  Receive Date: 20210112
  Receipt Date: 20210112
  Transmission Date: 20210419
  Serious: Yes (Hospitalization)
  Sender: FDA-Public Use
  Company Number: AR-BIOGEN-2021BI00965278

PATIENT
  Age: 8 Year
  Sex: Male

DRUGS (2)
  1. IBUPROFEN. [Concomitant]
     Active Substance: IBUPROFEN
     Indication: PROCEDURAL PAIN
     Route: 065
  2. SPINRAZA [Suspect]
     Active Substance: NUSINERSEN
     Indication: SPINAL MUSCULAR ATROPHY
     Route: 037
     Dates: start: 20201229

REACTIONS (6)
  - Back pain [Recovered/Resolved]
  - Procedural pain [Recovered/Resolved]
  - Abdominal pain upper [Recovered/Resolved]
  - Dehydration [Recovered/Resolved]
  - Fatigue [Recovered/Resolved]
  - Vomiting [Recovered/Resolved]

NARRATIVE: CASE EVENT DATE: 20201229
